FAERS Safety Report 13943766 (Version 1)
Quarter: 2017Q3

REPORT INFORMATION
  Report Type: Spontaneous
  Country: US (occurrence: US)
  Receive Date: 20170907
  Receipt Date: 20170907
  Transmission Date: 20171128
  Serious: No
  Sender: FDA-Public Use
  Company Number: US-ROCHE-1480904

PATIENT
  Sex: Female

DRUGS (2)
  1. CYMBALTA [Concomitant]
     Active Substance: DULOXETINE HYDROCHLORIDE
     Indication: DEPRESSION
  2. RITUXAN [Suspect]
     Active Substance: RITUXIMAB
     Indication: SYSTEMIC LUPUS ERYTHEMATOSUS
     Route: 042
     Dates: start: 2010, end: 2010

REACTIONS (4)
  - B-lymphocyte count decreased [Not Recovered/Not Resolved]
  - B-lymphocyte count decreased [Recovering/Resolving]
  - Therapeutic response decreased [Unknown]
  - Lymphocyte count decreased [Not Recovered/Not Resolved]
